FAERS Safety Report 6085327-2 (Version None)
Quarter: 2009Q1

REPORT INFORMATION
  Report Type: 
  Country: None (occurrence: None)
  Receive Date: 20090218
  Receipt Date: 20090213
  Transmission Date: 20090719
  Serious: Yes (Life-Threatening)
  Sender: FDA-Public Use
  Company Number: 2009-191492-NL

PATIENT
  Sex: Male

DRUGS (1)
  1. ROCURONIUM BROMIDE [Suspect]
     Dates: start: 20090213

REACTIONS (4)
  - ANAPHYLACTIC REACTION [None]
  - CARDIAC ARREST [None]
  - RENAL DISORDER [None]
  - URINE OUTPUT DECREASED [None]
